FAERS Safety Report 9170663 (Version 2)
Quarter: 2013Q1

REPORT INFORMATION
  Report Type: Spontaneous
  Country: CA (occurrence: CA)
  Receive Date: 20130319
  Receipt Date: 20130327
  Transmission Date: 20140127
  Serious: Yes (Life-Threatening, Hospitalization, Disabling, Other)
  Sender: FDA-Public Use
  Company Number: CA-B.I. PHARMACEUTICALS,INC./RIDGEFIELD-2013-CN-00406CN

PATIENT
  Age: 69 Year
  Sex: Male

DRUGS (2)
  1. ATROVENT [Suspect]
  2. SALBUTAMOL [Concomitant]

REACTIONS (7)
  - Dyspnoea [Unknown]
  - Nasopharyngitis [Unknown]
  - Pharyngitis streptococcal [Unknown]
  - Myocardial infarction [Unknown]
  - Dyspnoea [Unknown]
  - Gait disturbance [Unknown]
  - Emphysema [Unknown]
